FAERS Safety Report 8000367-1 (Version None)
Quarter: 2011Q4

REPORT INFORMATION
  Report Type: 
  Country: None (occurrence: None)
  Receive Date: 20111123
  Receipt Date: 20110907
  Transmission Date: 20120403
  Serious: Yes (Other)
  Sender: FDA-Public Use
  Company Number: 330109

PATIENT
  Age: 46 Year
  Sex: Male
  Weight: 101.1 kg

DRUGS (8)
  1. VICTOZA [Suspect]
     Indication: TYPE 2 DIABETES MELLITUS
     Dosage: 1.8 MG, QD, SUBCUTANEOUS, 0.6 MG, QD, SUBCUTANEOUS
     Route: 058
     Dates: start: 20110501, end: 20110603
  2. VICTOZA [Suspect]
     Indication: TYPE 2 DIABETES MELLITUS
     Dosage: 1.8 MG, QD, SUBCUTANEOUS, 0.6 MG, QD, SUBCUTANEOUS
     Route: 058
     Dates: start: 20110528
  3. CLARITHROMYCIN [Concomitant]
  4. LORAZEPAM [Concomitant]
  5. MORPHINE SULFATE INJ [Concomitant]
  6. ANDROGEL [Concomitant]
  7. ACTOS [Concomitant]
  8. NASONEX [Concomitant]

REACTIONS (1)
  - PANCREATITIS ACUTE [None]
